FAERS Safety Report 14314416 (Version 1)
Quarter: 2017Q4

REPORT INFORMATION
  Report Type: Spontaneous
  Country: AU (occurrence: AU)
  Receive Date: 20171221
  Receipt Date: 20171221
  Transmission Date: 20180321
  Serious: Yes (Hospitalization)
  Sender: FDA-Public Use
  Company Number: AU-JNJFOC-20171215866

PATIENT
  Age: 23 Year
  Sex: Male

DRUGS (5)
  1. RISPERIDONE. [Suspect]
     Active Substance: RISPERIDONE
     Indication: PSYCHOTIC DISORDER
     Route: 065
  2. RISPERIDONE. [Suspect]
     Active Substance: RISPERIDONE
     Indication: PSYCHOTIC DISORDER
     Route: 065
     Dates: end: 2017
  3. AGOMELATINE [Concomitant]
     Active Substance: AGOMELATINE
     Dosage: NIGHT
     Route: 048
     Dates: start: 20170713, end: 2017
  4. QUETIAPINE. [Concomitant]
     Active Substance: QUETIAPINE
     Dosage: NIGHT; 12.5 MG TO 25 MG
     Route: 048
     Dates: start: 20170718
  5. OLANZAPINE. [Concomitant]
     Active Substance: OLANZAPINE
     Indication: SCHIZOPHRENIA
     Dosage: NIGHT
     Route: 048

REACTIONS (4)
  - Delusion [Recovered/Resolved]
  - Hyperprolactinaemia [Unknown]
  - Hallucination, auditory [Recovered/Resolved]
  - Hypersomnia [Unknown]

NARRATIVE: CASE EVENT DATE: 20170908
